FAERS Safety Report 11925429 (Version 1)
Quarter: 2016Q1

REPORT INFORMATION
  Report Type: Spontaneous
  Country: US (occurrence: US)
  Receive Date: 20160118
  Receipt Date: 20160118
  Transmission Date: 20160526
  Serious: Yes (Other)
  Sender: FDA-Public Use
  Company Number: US-BANPHARM-20164559

PATIENT
  Age: 25 Year
  Sex: Female

DRUGS (1)
  1. ALEVE [Suspect]
     Active Substance: NAPROXEN SODIUM
     Route: 048
     Dates: start: 2015, end: 2015

REACTIONS (6)
  - Scar [Not Recovered/Not Resolved]
  - Dermatitis allergic [Recovered/Resolved]
  - Skin reaction [Unknown]
  - Hypersensitivity [Recovered/Resolved]
  - Skin irritation [Unknown]
  - Pruritus [Unknown]
